FAERS Safety Report 19551841 (Version 2)
Quarter: 2021Q3

REPORT INFORMATION
  Report Type: Spontaneous
  Country: JP (occurrence: JP)
  Receive Date: 20210715
  Receipt Date: 20210902
  Transmission Date: 20211014
  Serious: Yes (Other)
  Sender: FDA-Public Use
  Company Number: NVSJ2021JP010647

PATIENT

DRUGS (3)
  1. SANDOSTATIN [Suspect]
     Active Substance: OCTREOTIDE ACETATE
  2. SANDOSTATIN [Suspect]
     Active Substance: OCTREOTIDE ACETATE
     Indication: PRODUCT USED FOR UNKNOWN INDICATION
     Dosage: UNK
     Route: 058
  3. SANDOSTATIN [Suspect]
     Active Substance: OCTREOTIDE ACETATE

REACTIONS (1)
  - Melaena [Recovering/Resolving]
